FAERS Safety Report 4517403-7 (Version None)
Quarter: 2004Q4

REPORT INFORMATION
  Report Type: 
  Country: None (occurrence: None)
  Receive Date: 20041022
  Receipt Date: 20040701
  Transmission Date: 20050328
  Serious: No
  Sender: FDA-Public Use
  Company Number: 800044

PATIENT
  Age: 42 Year
  Sex: Male
  Weight: 77.1115 kg

DRUGS (8)
  1. EXTRANEAL [Suspect]
     Indication: PERITONEAL DIALYSIS
     Dosage: 200 CC;QD; INTRAPERITONEAL
     Route: 033
     Dates: start: 20040610
  2. EPOGEN [Concomitant]
  3. NEPHRO-VITE RX [Concomitant]
  4. RENAGEL [Concomitant]
  5. TOPROL-XL [Concomitant]
  6. NEPHROX [Concomitant]
  7. ROCALTROL [Concomitant]
  8. DIANEAL [Concomitant]

REACTIONS (2)
  - PRURITUS [None]
  - SKIN DESQUAMATION [None]
